FAERS Safety Report 10333509 (Version 16)
Quarter: 2015Q3

REPORT INFORMATION
  Report Type: Report from Study
  Country: BE (occurrence: BE)
  Receive Date: 20140722
  Receipt Date: 20150730
  Transmission Date: 20151125
  Serious: Yes (Hospitalization)
  Sender: FDA-Public Use
  Company Number: BE-009507513-1405BEL002773

PATIENT
  Age: 55 Year
  Sex: Female
  Weight: 50.2 kg

DRUGS (14)
  1. FLUTICASONE [Concomitant]
     Active Substance: FLUTICASONE\FLUTICASONE PROPIONATE
     Indication: ASTHMA
     Dosage: DAILY 6 MG, FORMULATION: INHALANT.
     Route: 055
     Dates: start: 201304
  2. PEMBROLIZUMAB. [Suspect]
     Active Substance: PEMBROLIZUMAB
     Indication: BREAST CANCER
     Dosage: 10 MG/KG, QOW
     Route: 042
     Dates: start: 20130927, end: 20140325
  3. VENLAFAXINE HYDROCHLORIDE. [Concomitant]
     Active Substance: VENLAFAXINE HYDROCHLORIDE
     Indication: AFFECTIVE DISORDER
     Dosage: 150 MG, QD
     Route: 048
     Dates: start: 20130910, end: 20140915
  4. CODEINE [Concomitant]
     Active Substance: CODEINE
     Indication: COUGH
     Dosage: TOTAL DAILY DOSE 1 TABLESPOON
     Route: 048
     Dates: start: 20131023
  5. ACETAMINOPHEN. [Concomitant]
     Active Substance: ACETAMINOPHEN
     Indication: HEADACHE
     Dosage: TOTAL DAILY DOSE 1G. FREQUENCY: AS NEEDED (PRN)
     Route: 048
     Dates: start: 20120927, end: 20140511
  6. VITAMIN D [Concomitant]
     Active Substance: CHOLECALCIFEROL
     Indication: PROPHYLAXIS
     Dosage: TOTAL DAILY DOSE 200 IU. FREQUENCY: AS NEEDED (PRN)
     Route: 048
     Dates: start: 200612
  7. CETIRIZINE HYDROCHLORIDE. [Concomitant]
     Active Substance: CETIRIZINE HYDROCHLORIDE
     Indication: ASTHMA
     Dosage: TOTAL DAILY DOSE 5 MG, PRN
     Route: 048
     Dates: start: 199201
  8. PEMBROLIZUMAB. [Suspect]
     Active Substance: PEMBROLIZUMAB
     Dosage: 10 MG/KG, QOW
     Route: 042
     Dates: start: 20140624
  9. ZOLPIDEM [Concomitant]
     Active Substance: ZOLPIDEM\ZOLPIDEM TARTRATE
     Indication: ANXIETY
     Dosage: 10 MG, QD,FORMATION:PILL
     Route: 048
     Dates: start: 20110221
  10. ACETAMINOPHEN. [Concomitant]
     Active Substance: ACETAMINOPHEN
     Indication: PREMEDICATION
     Dosage: TOTAL DAILY DOSE 1G. FREQUENCY: OTHER
     Route: 048
     Dates: start: 20130926
  11. ALBUTEROL. [Concomitant]
     Active Substance: ALBUTEROL
     Indication: ASTHMA
     Dosage: TOTAL DAILY DOSE 100 MICROGRAM. FREQUENCY: AS NEEDED (PRN). FORMULATION: INHALANT
     Route: 055
     Dates: start: 200512
  12. BUDESONIDE. [Concomitant]
     Active Substance: BUDESONIDE
     Indication: ASTHMA
     Dosage: FORMULATION: INHALANT; 500 MICROGRAM, BID
     Route: 055
     Dates: start: 20131203
  13. PEMBROLIZUMAB. [Suspect]
     Active Substance: PEMBROLIZUMAB
     Dosage: 10 MG/KG, QOW
     Route: 042
     Dates: start: 20140408, end: 20140408
  14. DIPHENHYDRAMINE. [Concomitant]
     Active Substance: DIPHENHYDRAMINE
     Indication: PREMEDICATION
     Dosage: TOTAL DAILY DOSE 50MG. FREQUENCY: OTHER
     Route: 048
     Dates: start: 20130926

REACTIONS (2)
  - Headache [Recovered/Resolved]
  - Meningitis aseptic [Recovered/Resolved]

NARRATIVE: CASE EVENT DATE: 20140428
